FAERS Safety Report 13908994 (Version 1)
Quarter: 2017Q3

REPORT INFORMATION
  Report Type: Spontaneous
  Country: GB (occurrence: GB)
  Receive Date: 20170828
  Receipt Date: 20170828
  Transmission Date: 20171127
  Serious: Yes (Disabling)
  Sender: FDA-Public Use
  Company Number: GB-TORRENT-00015540

PATIENT
  Age: 42 Year
  Sex: Male
  Weight: 120 kg

DRUGS (1)
  1. QUETIAPINE. [Suspect]
     Active Substance: QUETIAPINE

REACTIONS (8)
  - Hypotension [Not Recovered/Not Resolved]
  - Blood cholesterol increased [Not Recovered/Not Resolved]
  - Myalgia [Not Recovered/Not Resolved]
  - Cardiac disorder [Not Recovered/Not Resolved]
  - Sleep apnoea syndrome [Not Recovered/Not Resolved]
  - Insomnia [Not Recovered/Not Resolved]
  - Blood folate decreased [Not Recovered/Not Resolved]
  - Abnormal weight gain [Not Recovered/Not Resolved]

NARRATIVE: CASE EVENT DATE: 20170717
